FAERS Safety Report 18661720 (Version 2)
Quarter: 2021Q1

REPORT INFORMATION
  Report Type: Spontaneous
  Country: FR (occurrence: FR)
  Receive Date: 20201224
  Receipt Date: 20210216
  Transmission Date: 20210419
  Serious: Yes (Hospitalization)
  Sender: FDA-Public Use
  Company Number: FR-JNJFOC-20201233429

PATIENT
  Age: 64 Year
  Sex: Female
  Weight: 57 kg

DRUGS (2)
  1. REMICADE [Suspect]
     Active Substance: INFLIXIMAB
     Indication: ANKYLOSING SPONDYLITIS
     Route: 042
     Dates: start: 20100324, end: 20110107
  2. ENBREL [Suspect]
     Active Substance: ETANERCEPT
     Indication: ANKYLOSING SPONDYLITIS
     Route: 058
     Dates: start: 20110726, end: 20200524

REACTIONS (1)
  - Retroperitoneal fibrosis [Not Recovered/Not Resolved]

NARRATIVE: CASE EVENT DATE: 20200612
